FAERS Safety Report 4902408-4 (Version None)
Quarter: 2006Q1

REPORT INFORMATION
  Report Type: 
  Country: None (occurrence: None)
  Receive Date: 20060202
  Receipt Date: 20060123
  Transmission Date: 20060701
  Serious: Yes (Life-Threatening, Hospitalization)
  Sender: FDA-Public Use
  Company Number: 2005-04-1399

PATIENT
  Age: 77 Year
  Sex: Male
  Weight: 61 kg

DRUGS (2)
  1. PEG-INTRON (PEGINTERFERPON ALFA-2B) [Suspect]
     Indication: HEPATITIS C
     Dosage: 80 MCG QW SUBCUTANEOUS
     Route: 058
     Dates: start: 20041215, end: 20050318
  2. REBETOL [Suspect]
     Indication: HEPATITIS C
     Dosage: 600 MG ORAL
     Route: 048
     Dates: start: 20041215, end: 20050324

REACTIONS (9)
  - ABSCESS LIMB [None]
  - ARTHRALGIA [None]
  - BACK PAIN [None]
  - BACTERAEMIA [None]
  - PRURITUS [None]
  - PSOAS ABSCESS [None]
  - PYREXIA [None]
  - SPONDYLITIS [None]
  - STAPHYLOCOCCAL INFECTION [None]
